FAERS Safety Report 25736453 (Version 1)
Quarter: 2025Q3

REPORT INFORMATION
  Report Type: Spontaneous
  Country: RU (occurrence: RU)
  Receive Date: 20250828
  Receipt Date: 20250828
  Transmission Date: 20251021
  Serious: Yes (Hospitalization)
  Sender: AMGEN
  Company Number: RU-AMGEN-RUSSP2025166855

PATIENT
  Age: 67 Year
  Sex: Female

DRUGS (2)
  1. PROLIA [Suspect]
     Active Substance: DENOSUMAB
     Indication: Osteoporosis postmenopausal
     Route: 058
     Dates: start: 20250806
  2. PROLIA [Suspect]
     Active Substance: DENOSUMAB
     Route: 058
     Dates: end: 20250806

REACTIONS (4)
  - Dizziness postural [Recovered/Resolved]
  - Hot flush [Recovered/Resolved]
  - Tremor [Recovered/Resolved]
  - Dry mouth [Recovered/Resolved]

NARRATIVE: CASE EVENT DATE: 20250806
